FAERS Safety Report 6802474-5 (Version None)
Quarter: 2010Q2

REPORT INFORMATION
  Report Type: 
  Country: None (occurrence: None)
  Receive Date: 20100628
  Receipt Date: 20100619
  Transmission Date: 20101027
  Serious: Yes (Life-Threatening, Other)
  Sender: FDA-Public Use
  Company Number: JP-SHIRE-SPV1-2010-00229

PATIENT

DRUGS (29)
  1. FOSRENOL [Suspect]
     Indication: HYPERPHOSPHATAEMIA
     Dosage: 750 MG DAILY
     Route: 048
     Dates: start: 20090607, end: 20091128
  2. FOSRENOL [Suspect]
     Dosage: 750 MG DAILY
     Route: 048
     Dates: start: 20091202, end: 20091207
  3. DIPRIVAN [Concomitant]
     Indication: DRUG USE FOR UNKNOWN INDICATION
     Dosage: UNK, UNKNOWN
     Route: 065
  4. ROCURONIUM BROMIDE [Concomitant]
     Indication: DRUG USE FOR UNKNOWN INDICATION
     Dosage: UNK, UNKNOWN
     Route: 042
  5. ULTIVA [Concomitant]
     Indication: DRUG USE FOR UNKNOWN INDICATION
     Dosage: UNK, UNKNOWN
     Route: 042
  6. FENTANYL [Concomitant]
     Indication: DRUG USE FOR UNKNOWN INDICATION
     Dosage: UNK, UNKNOWN
     Route: 065
  7. ROPIVACAINE HYDROCHLORIDE [Concomitant]
     Indication: DRUG USE FOR UNKNOWN INDICATION
     Dosage: UNK, UNKNOWN
     Route: 065
  8. XYLOCAINE [Concomitant]
     Indication: DRUG USE FOR UNKNOWN INDICATION
     Dosage: UNK, UNKNOWN
     Route: 065
  9. JUVELA N [Concomitant]
     Indication: HYPERTENSION
     Dosage: 600 MG, UNKNOWN
     Route: 048
     Dates: end: 20091128
  10. LASIX [Concomitant]
     Indication: THERAPEUTIC PROCEDURE
     Dosage: 80 MG, UNKNOWN
     Route: 048
     Dates: start: 20040301, end: 20091128
  11. LASIX [Concomitant]
     Dosage: 80 MG, UNKNOWN
     Route: 048
     Dates: start: 20091202, end: 20091209
  12. GASMOTIN [Concomitant]
     Indication: GASTRITIS
     Dosage: 15 MG, UNKNOWN
     Route: 048
     Dates: start: 20080710, end: 20091128
  13. PARIET [Concomitant]
     Indication: ULCER
     Dosage: 10 MG, UNKNOWN
     Route: 048
     Dates: start: 20061001, end: 20091128
  14. PARIET [Concomitant]
     Dosage: 10 MG, UNKNOWN
     Route: 048
     Dates: start: 20091202, end: 20091209
  15. WARFARIN [Concomitant]
     Indication: THERAPEUTIC PROCEDURE
     Dosage: 1.5 MG, UNKNOWN
     Route: 048
     Dates: start: 20080201, end: 20081128
  16. FLUMARIN                           /00963302/ [Concomitant]
     Indication: THERAPEUTIC PROCEDURE
     Dosage: .15 G, UNKNOWN
     Route: 042
     Dates: start: 20080401, end: 20091102
  17. FLUMARIN                           /00963302/ [Concomitant]
     Dosage: .15 G, UNKNOWN
     Route: 042
     Dates: start: 20091202, end: 20091209
  18. MYSLEE [Concomitant]
     Indication: INSOMNIA
     Dosage: 5 MG, UNKNOWN
     Route: 048
     Dates: start: 20080201, end: 20081128
  19. CALCIUM CARBONATE [Concomitant]
     Indication: HYPERPHOSPHATAEMIA
     Dosage: 1000 MG, UNKNOWN
     Route: 048
     Dates: start: 20090802, end: 20091128
  20. CALCIUM CARBONATE [Concomitant]
     Dosage: 1000 MG, UNKNOWN
     Route: 048
     Dates: start: 20091202, end: 20091209
  21. RISUMIC [Concomitant]
     Indication: PROCEDURAL HYPOTENSION
     Dosage: 20 MG, UNKNOWN
     Route: 048
     Dates: start: 20091001, end: 20091128
  22. RISUMIC [Concomitant]
     Dosage: 20 MG, UNKNOWN
     Route: 048
     Dates: start: 20091202, end: 20091209
  23. LEBENIN [Concomitant]
     Indication: ENTEROCOLITIS
     Dosage: 3 DF, UNKNOWN
     Route: 048
     Dates: start: 20091203, end: 20091209
  24. CEFMETAZON [Concomitant]
     Indication: PERITONITIS
     Dosage: 1 G, UNKNOWN
     Route: 042
     Dates: start: 20091128, end: 20091214
  25. HEPARIN [Concomitant]
     Indication: THERAPEUTIC PROCEDURE
     Dosage: 12000 IU, UNKNOWN
     Route: 042
     Dates: start: 20091130, end: 20091205
  26. HEPARIN [Concomitant]
     Dosage: 12000 IU, UNKNOWN
     Route: 042
     Dates: start: 20091213, end: 20091214
  27. HUMAN RED BLOOD CELLS [Concomitant]
     Indication: DRUG USE FOR UNKNOWN INDICATION
     Dosage: UNK, UNKNOWN
     Route: 042
     Dates: start: 20091208, end: 20091208
  28. HUMAN RED BLOOD CELLS [Concomitant]
     Dosage: UNK, UNKNOWN
     Route: 042
     Dates: start: 20091209, end: 20091209
  29. HUMAN RED BLOOD CELLS [Concomitant]
     Dosage: UNK, UNKNOWN
     Route: 042
     Dates: start: 20091215

REACTIONS (3)
  - DRUG ADMINISTRATION ERROR [None]
  - ILEUS [None]
  - SMALL INTESTINAL PERFORATION [None]
